FAERS Safety Report 7658543-3 (Version None)
Quarter: 2011Q3

REPORT INFORMATION
  Report Type: 
  Country: None (occurrence: None)
  Receive Date: 20110804
  Receipt Date: 20110804
  Transmission Date: 20111222
  Serious: Yes (Hospitalization)
  Sender: FDA-Public Use
  Company Number: None

PATIENT
  Age: 26 Year
  Sex: Male
  Weight: 61.1 kg

DRUGS (12)
  1. PROCHLORPERAZINE [Concomitant]
  2. ATIVAN [Concomitant]
  3. OXYCONTIN [Concomitant]
  4. DEXAMETHASONE [Concomitant]
  5. SENNA [Concomitant]
  6. ALIMTA [Suspect]
     Indication: SARCOMA
  7. TAXOTERE [Suspect]
     Indication: SARCOMA
  8. NAPROXEN [Concomitant]
  9. PLEXERIL [Concomitant]
  10. OXYCODONE HCL [Concomitant]
  11. PLEXERIL [Concomitant]
  12. VOLTAREN [Concomitant]

REACTIONS (3)
  - PAIN [None]
  - HYPOAESTHESIA [None]
  - FACE OEDEMA [None]
